FAERS Safety Report 5866545-2 (Version None)
Quarter: 2008Q3

REPORT INFORMATION
  Report Type: 
  Country: None (occurrence: None)
  Receive Date: 20080902
  Receipt Date: 20080826
  Transmission Date: 20090109
  Serious: Yes (Other)
  Sender: FDA-Public Use
  Company Number: US-CELGENEUS-163-21880-08041179

PATIENT
  Sex: Female

DRUGS (2)
  1. REVLIMID [Suspect]
     Indication: MULTIPLE MYELOMA
     Route: 048
     Dates: start: 20080318, end: 20080401
  2. REVLIMID [Suspect]
     Route: 048
     Dates: start: 20080407

REACTIONS (3)
  - FATIGUE [None]
  - NASOPHARYNGITIS [None]
  - THROAT TIGHTNESS [None]
